FAERS Safety Report 16614057 (Version 1)
Quarter: 2019Q3

REPORT INFORMATION
  Report Type: Report from Study
  Country: BR (occurrence: BR)
  Receive Date: 20190723
  Receipt Date: 20190723
  Transmission Date: 20191004
  Serious: Yes (Other)
  Sender: FDA-Public Use
  Company Number: BR-SA-2019SA080450

PATIENT
  Age: 31 Year
  Sex: Male
  Weight: 90 kg

DRUGS (2)
  1. GLUTAMINE [Concomitant]
     Active Substance: GLUTAMINE
  2. ALEMTUZUMAB [Suspect]
     Active Substance: ALEMTUZUMAB
     Indication: MULTIPLE SCLEROSIS
     Dosage: 5(UNIT NOT PROVIDED)
     Route: 041
     Dates: start: 20190128, end: 20190201

REACTIONS (4)
  - Stress [Recovering/Resolving]
  - Multiple sclerosis [Recovering/Resolving]
  - Immunodeficiency [Recovering/Resolving]
  - Depression [Recovering/Resolving]
